FAERS Safety Report 7821834 (Version 2)
Quarter: 2012Q4

REPORT INFORMATION
  Report Type: 
  Country: DK (occurrence: DK)
  Receive Date: 20110222
  Receipt Date: 20121010
  Transmission Date: 20130627
  Serious: Yes (Other)
  Sender: FDA-Public Use
  Company Number: DK-JNJFOC-20110204655

PATIENT
  Age: 68 None
  Sex: Female
  Weight: 65 kg

DRUGS (5)
  1. REMICADE [Suspect]
     Indication: RHEUMATOID ARTHRITIS
     Route: 042
     Dates: start: 20091125, end: 20100204
  2. REMICADE [Suspect]
     Indication: RHEUMATOID ARTHRITIS
     Route: 042
     Dates: start: 20021008, end: 2006
  3. REMICADE [Suspect]
     Indication: RHEUMATOID ARTHRITIS
     Route: 042
     Dates: start: 2006
  4. METHOTREXATE [Concomitant]
     Indication: PROPHYLAXIS
     Route: 048
  5. METHOTREXATE [Concomitant]
     Indication: PROPHYLAXIS
     Dosage: 10-25mg
     Route: 048
     Dates: start: 20021008

REACTIONS (4)
  - Colon cancer [Recovering/Resolving]
  - Nausea [Recovering/Resolving]
  - Abdominal pain [Recovering/Resolving]
  - Vomiting [Recovering/Resolving]
